FAERS Safety Report 20227818 (Version 1)
Quarter: 2021Q4

REPORT INFORMATION
  Report Type: Spontaneous
  Country: US (occurrence: US)
  Receive Date: 20211224
  Receipt Date: 20211224
  Transmission Date: 20220303
  Serious: Yes (Death, Life-Threatening, Hospitalization, Other)
  Sender: FDA-Public Use
  Company Number: US-PFIZER INC-202101829827

PATIENT
  Age: 30 Year
  Sex: Female

DRUGS (4)
  1. BEVACIZUMAB [Suspect]
     Active Substance: BEVACIZUMAB
     Indication: Spinal cord compression
     Dosage: UNK
     Dates: end: 202002
  2. FLUOROURACIL [Concomitant]
     Active Substance: FLUOROURACIL
     Indication: Spinal cord compression
     Dosage: UNK, CYCLIC
     Dates: end: 202002
  3. OXALIPLATIN [Concomitant]
     Active Substance: OXALIPLATIN
     Indication: Spinal cord compression
     Dosage: UNK, CYCLIC (8 CYCLES)
  4. LEUCOVORIN [Concomitant]
     Active Substance: LEUCOVORIN
     Indication: Spinal cord compression
     Dosage: UNK, CYCLIC

REACTIONS (1)
  - Oesophageal fistula [Fatal]
